FAERS Safety Report 8807524 (Version 4)
Quarter: 2012Q4

REPORT INFORMATION
  Report Type: 
  Country: BR (occurrence: BR)
  Receive Date: 20120925
  Receipt Date: 20121226
  Transmission Date: 20130627
  Serious: Yes (Hospitalization)
  Sender: FDA-Public Use
  Company Number: BR-PFIZER INC-2012232152

PATIENT
  Age: 67 Year
  Sex: Female
  Weight: 50 kg

DRUGS (7)
  1. SUTENT [Suspect]
     Indication: RENAL CANCER
     Dosage: 50 mg, 1x/day
     Route: 048
     Dates: start: 20120913
  2. SUTENT [Suspect]
     Indication: METASTASES TO LUNG
     Dosage: 50 mg, cyclic (4x2)
     Route: 048
  3. SUTENT [Suspect]
     Indication: RENAL CELL CARCINOMA
  4. METAMIZOLE [Concomitant]
  5. HYDROCHLOROTHIAZIDE [Concomitant]
  6. CAPTOPRIL [Concomitant]
  7. PROPRANOLOL [Concomitant]

REACTIONS (15)
  - Pain [Unknown]
  - Arthralgia [Unknown]
  - Decreased immune responsiveness [Unknown]
  - Labyrinthitis [Unknown]
  - Chapped lips [Unknown]
  - Skin fissures [Unknown]
  - Disease progression [Unknown]
  - Renal cancer [Unknown]
  - Cheilitis [Unknown]
  - Weight decreased [Unknown]
  - Dehydration [Unknown]
  - Yellow skin [Recovering/Resolving]
  - Hyperkeratosis [Unknown]
  - Skin ulcer [Recovering/Resolving]
  - Eating disorder [Recovered/Resolved]
